FAERS Safety Report 7315812-4 (Version None)
Quarter: 2011Q1

REPORT INFORMATION
  Report Type: 
  Country: None (occurrence: None)
  Receive Date: 20110225
  Receipt Date: 20110225
  Transmission Date: 20110831
  Serious: Yes (Hospitalization, Other)
  Sender: FDA-Public Use
  Company Number: DE-ELI_LILLY_AND_COMPANY-DE201007005259

PATIENT
  Sex: Male
  Weight: 67.2 kg

DRUGS (20)
  1. CISPLATIN [Suspect]
     Dosage: 106.4 MG, OTHER
     Route: 042
  2. PANTOPRAZOL [Concomitant]
     Indication: VOMITING
     Dosage: UNK, UNK
     Dates: start: 20100716
  3. DEXAMETHASONE [Concomitant]
     Indication: NAUSEA
     Dates: start: 20100618, end: 20100620
  4. BUDESONIDE [Concomitant]
     Indication: DYSPNOEA
     Dates: start: 20100330
  5. PANTOPRAZOL [Concomitant]
     Route: 042
     Dates: start: 20100715, end: 20100715
  6. APREPITANT [Concomitant]
     Dosage: 80 MG, UNK
     Dates: start: 20100730, end: 20100731
  7. NECITUMUMAB (11F8) (LY3012211) [Suspect]
     Indication: NON-SMALL CELL LUNG CANCER
     Dosage: 800 MG, OTHER
     Route: 042
     Dates: start: 20100528
  8. METOCLOPRAMIDE HCL [Concomitant]
     Indication: NAUSEA
     Dosage: 80 MG, UNK
     Dates: start: 20100616
  9. POTASSIUM CHLORIDE [Concomitant]
     Indication: HYPOKALAEMIA
     Dates: start: 20100715, end: 20100715
  10. POTASSIUM CHLORIDE [Concomitant]
     Dates: start: 20100717, end: 20100717
  11. APREPITANT [Concomitant]
     Indication: NAUSEA
     Dates: start: 20100618, end: 20100619
  12. APREPITANT [Concomitant]
     Dates: start: 20100529, end: 20100530
  13. NECITUMUMAB (11F8) (LY3012211) [Suspect]
     Dosage: 400 MG, OTHER
     Route: 042
  14. DEXAMETHASONE [Concomitant]
     Dosage: 8 MG, UNK
     Dates: start: 20100730, end: 20100801
  15. PEMETREXED [Suspect]
     Dosage: 712.5 MG, OTHER
     Route: 042
  16. CISPLATIN [Suspect]
     Indication: NON-SMALL CELL LUNG CANCER
     Dosage: 144 MG, OTHER
     Route: 042
     Dates: start: 20100528
  17. PEMETREXED [Suspect]
     Indication: NON-SMALL CELL LUNG CANCER
     Dosage: 800 MG, OTHER
     Route: 042
     Dates: start: 20100528
  18. INDACATEROL [Concomitant]
     Indication: DYSPNOEA
     Dosage: UNK, UNK
     Dates: start: 20100330
  19. TPN [Concomitant]
     Indication: DEHYDRATION
     Dates: start: 20100715, end: 20100719
  20. DEXAMETHASONE [Concomitant]
     Dates: start: 20100529, end: 20100531

REACTIONS (18)
  - DEHYDRATION [None]
  - HYPOKALAEMIA [None]
  - PROTEIN URINE PRESENT [None]
  - BLOOD SODIUM DECREASED [None]
  - DEVICE RELATED INFECTION [None]
  - LEUKOPENIA [None]
  - NAUSEA [None]
  - INTESTINAL ISCHAEMIA [None]
  - GLUCOSE URINE PRESENT [None]
  - HYPOCALCAEMIA [None]
  - PROTEIN TOTAL DECREASED [None]
  - PYREXIA [None]
  - THROMBOSIS [None]
  - VOMITING [None]
  - BLOOD URINE PRESENT [None]
  - STAPHYLOCOCCAL INFECTION [None]
  - NEUTROPENIA [None]
  - HYPOMAGNESAEMIA [None]
